FAERS Safety Report 4839168-1 (Version None)
Quarter: 2005Q4

REPORT INFORMATION
  Report Type: 
  Country: None (occurrence: None)
  Receive Date: 20051031
  Receipt Date: 20050713
  Transmission Date: 20060501
  Serious: No
  Sender: FDA-Public Use
  Company Number: 200513396US

PATIENT
  Age: 32 Year
  Sex: Female
  Weight: 56.4 kg

DRUGS (1)
  1. KETEK [Suspect]
     Dosage: 800 MG ONCE
     Dates: start: 20050401, end: 20050401

REACTIONS (4)
  - DIPLOPIA [None]
  - VERTIGO [None]
  - VISION BLURRED [None]
  - VISUAL DISTURBANCE [None]
